FAERS Safety Report 7226286-6 (Version None)
Quarter: 2011Q1

REPORT INFORMATION
  Report Type: 
  Country: None (occurrence: None)
  Receive Date: 20110114
  Receipt Date: 20110105
  Transmission Date: 20110831
  Serious: Yes (Hospitalization)
  Sender: FDA-Public Use
  Company Number: PHHY2010JP56465

PATIENT
  Sex: Male
  Weight: 53 kg

DRUGS (16)
  1. GLYSENNID [Concomitant]
     Indication: CONSTIPATION
     Dosage: 12 MG
     Route: 048
     Dates: start: 20080205
  2. GLEEVEC [Suspect]
     Dosage: 100 MG, QD
     Route: 048
     Dates: start: 20100730, end: 20100805
  3. FLUMETHOLON [Concomitant]
     Indication: EYE DISCHARGE
     Dosage: UNK
     Route: 047
     Dates: start: 20100702
  4. FLUMETHOLON [Concomitant]
     Indication: CONJUNCTIVAL HYPERAEMIA
  5. SOL-MELCORT [Concomitant]
     Dosage: 500 MG, UNK
     Dates: start: 20100702
  6. ORNITHINE [Suspect]
     Dosage: UNK
     Route: 048
     Dates: end: 20100701
  7. BETAMETHASONE [Concomitant]
     Dosage: UNK
     Route: 061
     Dates: start: 20100703
  8. ALESION [Concomitant]
     Dosage: 20 MG, QD
     Route: 061
     Dates: start: 20100706, end: 20100812
  9. GLEEVEC [Suspect]
     Dosage: 400 MG, QD
     Route: 048
     Dates: start: 20100827
  10. ANTEBATE [Concomitant]
     Indication: PRURITUS
     Dosage: UNK
     Route: 061
     Dates: start: 20100706
  11. GLEEVEC [Suspect]
     Dosage: 200 MG, QD
     Route: 048
     Dates: start: 20100806, end: 20100812
  12. GLEEVEC [Suspect]
     Dosage: 300 MG, QD
     Route: 048
     Dates: start: 20100813, end: 20100826
  13. PARIET [Suspect]
     Indication: ABDOMINAL PAIN UPPER
     Dosage: 10 MG, DAILY
     Route: 048
     Dates: start: 20091221, end: 20100701
  14. GLEEVEC [Suspect]
     Indication: GASTROINTESTINAL STROMAL TUMOUR
     Dosage: 400 MG, QD
     Route: 048
     Dates: start: 20100618, end: 20100701
  15. CHLORELLA VULGARIS [Suspect]
     Dosage: UNK
     Route: 048
     Dates: end: 20100701
  16. MAGMITT [Concomitant]
     Indication: CONSTIPATION
     Dosage: 1500 MG
     Route: 048
     Dates: start: 20080210

REACTIONS (13)
  - PYREXIA [None]
  - ALANINE AMINOTRANSFERASE INCREASED [None]
  - ERYTHEMA [None]
  - CONJUNCTIVAL HYPERAEMIA [None]
  - SKIN LESION [None]
  - PRURITUS [None]
  - C-REACTIVE PROTEIN INCREASED [None]
  - BLOOD BILIRUBIN DECREASED [None]
  - LYMPHOCYTE COUNT DECREASED [None]
  - PLATELET COUNT DECREASED [None]
  - GAMMA-GLUTAMYLTRANSFERASE INCREASED [None]
  - EYE DISCHARGE [None]
  - ENANTHEMA [None]
